FAERS Safety Report 8366078-8 (Version None)
Quarter: 2012Q2

REPORT INFORMATION
  Report Type: 
  Country: None (occurrence: None)
  Receive Date: 20120517
  Receipt Date: 20120510
  Transmission Date: 20120825
  Serious: Yes (Life-Threatening, Other)
  Sender: FDA-Public Use
  Company Number: US-ELI_LILLY_AND_COMPANY-US201202001068

PATIENT
  Sex: Female

DRUGS (3)
  1. LYRICA [Concomitant]
     Dosage: UNK
  2. CELEBREX [Concomitant]
     Dosage: UNK
  3. CYMBALTA [Suspect]
     Dosage: UNK, UNKNOWN

REACTIONS (6)
  - PAIN [None]
  - CRYING [None]
  - FURUNCLE [None]
  - POST PROCEDURAL INFECTION [None]
  - DEPRESSION [None]
  - SURGERY [None]
